FAERS Safety Report 6093227-7 (Version None)
Quarter: 2009Q1

REPORT INFORMATION
  Report Type: 
  Country: None (occurrence: None)
  Receive Date: 20090226
  Receipt Date: 20090130
  Transmission Date: 20090719
  Serious: No
  Sender: FDA-Public Use
  Company Number: US-BAYER-200840135NA

PATIENT
  Age: 87 Year
  Sex: Female

DRUGS (2)
  1. ULTRAVIST 300 [Suspect]
     Indication: COMPUTERISED TOMOGRAM ABDOMEN
     Dosage: TOTAL DAILY DOSE: 100 ML
     Route: 042
     Dates: start: 20081203, end: 20081203
  2. GASTROVIST [Concomitant]
     Indication: PREMEDICATION
     Route: 048
     Dates: start: 20081203, end: 20081203

REACTIONS (1)
  - URTICARIA [None]
